FAERS Safety Report 12236597 (Version 4)
Quarter: 2016Q2

REPORT INFORMATION
  Report Type: Spontaneous
  Country: US (occurrence: US)
  Receive Date: 20160405
  Receipt Date: 20160506
  Transmission Date: 20160815
  Serious: Yes (Death, Hospitalization, Other)
  Sender: FDA-Public Use
  Company Number: US-009507513-1603USA013637

PATIENT
  Sex: Male

DRUGS (5)
  1. ASPIRIN. [Concomitant]
     Active Substance: ASPIRIN
     Dosage: 81 MG, UNK
     Route: 048
  2. SOTALOL. [Concomitant]
     Active Substance: SOTALOL
  3. KEYTRUDA [Suspect]
     Active Substance: PEMBROLIZUMAB
     Indication: LUNG CARCINOMA CELL TYPE UNSPECIFIED STAGE IV
     Dosage: UNK
     Route: 042
     Dates: start: 201508
  4. OXYCODONE [Concomitant]
     Active Substance: OXYCODONE
     Dosage: 325 MG, Q6H
  5. FOLIC ACID. [Concomitant]
     Active Substance: FOLIC ACID
     Dosage: 1 X

REACTIONS (9)
  - Asthenia [Unknown]
  - Lung neoplasm malignant [Fatal]
  - Diarrhoea [Unknown]
  - Pruritus [Unknown]
  - Cough [Unknown]
  - Thrombosis [Unknown]
  - Melanocytic naevus [Unknown]
  - Dyspnoea [Unknown]
  - Blindness [Unknown]
